FAERS Safety Report 7387223-7 (Version None)
Quarter: 2011Q1

REPORT INFORMATION
  Report Type: 
  Country: None (occurrence: None)
  Receive Date: 20110331
  Receipt Date: 20110322
  Transmission Date: 20110831
  Serious: Yes (Other)
  Sender: FDA-Public Use
  Company Number: GB-ASTRAZENECA-2011SE16160

PATIENT
  Age: 50 Year
  Sex: Male

DRUGS (12)
  1. IMIPRAMINE [Concomitant]
  2. TRAMADOL HCL [Concomitant]
  3. ACETAMINOPHEN AND CODEINE PHOSPHATE [Concomitant]
  4. AMLODIPINE [Concomitant]
  5. NOVOMIX [Concomitant]
  6. ASPIRIN [Concomitant]
  7. ATENOLOL [Concomitant]
  8. ZOLPIDEM TARTRATE [Concomitant]
  9. OMEPRAZOLE [Suspect]
     Indication: DYSPEPSIA
     Route: 048
     Dates: start: 20090924, end: 20110116
  10. ATORVASTATIN CALCIUM [Concomitant]
  11. VALSARTAN [Concomitant]
  12. METFORMIN HCL [Concomitant]

REACTIONS (1)
  - ERECTILE DYSFUNCTION [None]
